FAERS Safety Report 11487014 (Version 2)
Quarter: 2015Q4

REPORT INFORMATION
  Report Type: Spontaneous
  Country: US (occurrence: US)
  Receive Date: 20150910
  Receipt Date: 20151123
  Transmission Date: 20160304
  Serious: No
  Sender: FDA-Public Use
  Company Number: US-PFIZER INC-2015296606

PATIENT
  Age: 52 Year
  Sex: Female
  Weight: 73 kg

DRUGS (5)
  1. XELJANZ [Suspect]
     Active Substance: TOFACITINIB CITRATE
     Indication: RHEUMATOID ARTHRITIS
     Dosage: 5 MG, 2X/DAY, IN THE MORNING AND IN THE EVENING
     Dates: start: 201402
  2. NAPROSYN [Concomitant]
     Active Substance: NAPROXEN
     Dosage: 1000 MG, ALTERNATE DAY, TAKES DICLOFENAC ONE DAY AND NAPROSYN THE OTHER DAY
     Dates: start: 201202
  3. TRAMADOL. [Concomitant]
     Active Substance: TRAMADOL
     Indication: PAIN
     Dosage: 500 MG, UNK, SOMETIMES TAKES 2 A DAY
     Dates: start: 201202
  4. DICLOFENAC [Concomitant]
     Active Substance: DICLOFENAC
     Dosage: 150 MG, ALTERNATE DAY, TAKES DICLOFENAC ONE DAY AND NAPROSYN THE OTHER DAY
     Dates: start: 201402
  5. LEFLUNOMIDE. [Concomitant]
     Active Substance: LEFLUNOMIDE
     Indication: ARTHRITIS
     Dosage: 20 MG, 1X/DAY
     Route: 048
     Dates: start: 201202

REACTIONS (9)
  - Drug ineffective [Not Recovered/Not Resolved]
  - Headache [Not Recovered/Not Resolved]
  - Formication [Not Recovered/Not Resolved]
  - Paraesthesia [Not Recovered/Not Resolved]
  - Dizziness [Not Recovered/Not Resolved]
  - Arthropathy [Unknown]
  - Nuchal rigidity [Unknown]
  - Blister [Not Recovered/Not Resolved]
  - Neck mass [Unknown]

NARRATIVE: CASE EVENT DATE: 2015
